FAERS Safety Report 12661799 (Version 3)
Quarter: 2016Q3

REPORT INFORMATION
  Report Type: Spontaneous
  Country: US (occurrence: US)
  Receive Date: 20160817
  Receipt Date: 20160906
  Transmission Date: 20161109
  Serious: Yes (Other)
  Sender: FDA-Public Use
  Company Number: US-JNJFOC-20160808212

PATIENT
  Age: 70 Year
  Sex: Female
  Weight: 66 kg

DRUGS (23)
  1. LISINOPRIL. [Concomitant]
     Active Substance: LISINOPRIL
     Route: 048
  2. HYDROCORTISONE. [Concomitant]
     Active Substance: HYDROCORTISONE
     Dosage: APPLY TOPICALLY 4 TIMES DAILY AS NEEDED, 2 TIMES DAILY.
     Route: 061
  3. NASONEX [Concomitant]
     Active Substance: MOMETASONE FUROATE
     Dosage: 50 MCG
     Route: 045
  4. COUMADIN [Concomitant]
     Active Substance: WARFARIN SODIUM
     Route: 048
  5. REMICADE [Suspect]
     Active Substance: INFLIXIMAB
     Indication: COLITIS ULCERATIVE
     Dosage: DOSE:10MG/KG
     Route: 042
     Dates: start: 2011
  6. EPLERENONE. [Concomitant]
     Active Substance: EPLERENONE
     Route: 048
  7. LASIX [Concomitant]
     Active Substance: FUROSEMIDE
     Route: 048
  8. ZOFRAN [Concomitant]
     Active Substance: ONDANSETRON HYDROCHLORIDE
     Dosage: ONE TABLET EVRY 4 TO 6 HOURS
     Route: 048
  9. X-VIATE [Concomitant]
     Active Substance: UREA
     Route: 065
  10. METOPROLOL. [Concomitant]
     Active Substance: METOPROLOL
     Route: 048
  11. ZOVIRAX [Concomitant]
     Active Substance: ACYCLOVIR
     Route: 061
  12. ESTRACE [Concomitant]
     Active Substance: ESTRADIOL
     Route: 067
  13. RETIN-A [Concomitant]
     Active Substance: TRETINOIN
     Dosage: APPLY AT NIGHT
     Route: 061
  14. XANAX [Concomitant]
     Active Substance: ALPRAZOLAM
     Route: 048
  15. ANUCORT-HC [Concomitant]
     Active Substance: HYDROCORTISONE ACETATE
     Route: 065
  16. REMICADE [Suspect]
     Active Substance: INFLIXIMAB
     Indication: COLITIS ULCERATIVE
     Route: 042
     Dates: start: 201111
  17. CANASA [Concomitant]
     Active Substance: MESALAMINE
     Route: 054
  18. REMERON [Concomitant]
     Active Substance: MIRTAZAPINE
     Dosage: HALF TABLET AT BEDTIME FOR 3- 5 DAYS THE INCREASE TO 1 TABLET BEDTIME
     Route: 065
  19. LIBRAX [Concomitant]
     Active Substance: CHLORDIAZEPOXIDE HYDROCHLORIDE\CLIDINIUM BROMIDE
     Dosage: 2.5 / 5 MG ONE CAPSULE BY MOUTH EVERY 4 TO 6 HOURS IF NEEDED.
     Route: 048
  20. REMICADE [Suspect]
     Active Substance: INFLIXIMAB
     Indication: COLITIS ULCERATIVE
     Route: 042
  21. REMICADE [Suspect]
     Active Substance: INFLIXIMAB
     Indication: COLITIS ULCERATIVE
     Route: 042
     Dates: start: 201507
  22. LIPITOR [Concomitant]
     Active Substance: ATORVASTATIN CALCIUM
     Route: 048
  23. LANOXIN [Concomitant]
     Active Substance: DIGOXIN
     Route: 048

REACTIONS (5)
  - Squamous cell carcinoma of the cervix [Unknown]
  - Product use issue [Unknown]
  - Endometrial cancer [Unknown]
  - Drug ineffective [Unknown]
  - Off label use [Unknown]

NARRATIVE: CASE EVENT DATE: 201111
